FAERS Safety Report 10791865 (Version 4)
Quarter: 2015Q2

REPORT INFORMATION
  Report Type: Spontaneous
  Country: IT (occurrence: IT)
  Receive Date: 20150213
  Receipt Date: 20150401
  Transmission Date: 20150821
  Serious: Yes (Hospitalization)
  Sender: FDA-Public Use
  Company Number: IT-ROCHE-1536139

PATIENT
  Age: 74 Year
  Sex: Female

DRUGS (12)
  1. CYCLOPHOSPHAMIDE. [Concomitant]
     Active Substance: CYCLOPHOSPHAMIDE
     Dosage: SECOND LINE
     Route: 042
     Dates: start: 20080109, end: 20080506
  2. EPIRUBICIN [Concomitant]
     Active Substance: EPIRUBICIN
     Dosage: 50 MG/MQ?1 LINE 9 CYCLES
     Route: 042
     Dates: start: 1995, end: 1996
  3. PREDNISONE. [Concomitant]
     Active Substance: PREDNISONE
     Dosage: I LINE?9 CYCLES, 50 MG ON DAYS 1,2,3,4,5,
     Route: 048
     Dates: start: 1995, end: 1996
  4. FLUDARABINE [Concomitant]
     Active Substance: FLUDARABINE PHOSPHATE
     Dosage: III LINE?2 CYCLES, 50 MG ON DAYS 1,2,3
     Route: 042
     Dates: start: 20080708, end: 20080828
  5. VINCRISTINE [Concomitant]
     Active Substance: VINCRISTINE
     Dosage: II LINE?6 CYCLES
     Route: 042
     Dates: start: 20080109, end: 20080506
  6. CYCLOPHOSPHAMIDE. [Concomitant]
     Active Substance: CYCLOPHOSPHAMIDE
     Dosage: 750 MG/MQ?FIRST LINE
     Route: 042
     Dates: start: 1995, end: 1996
  7. MABTHERA [Suspect]
     Active Substance: RITUXIMAB
     Indication: NON-HODGKIN^S LYMPHOMA
     Route: 042
     Dates: start: 20080108, end: 20080108
  8. MABTHERA [Suspect]
     Active Substance: RITUXIMAB
     Indication: BONE MARROW INFILTRATION
     Route: 042
     Dates: start: 20081213, end: 20090511
  9. PREDNISONE. [Concomitant]
     Active Substance: PREDNISONE
     Dosage: IILINE, ORAL, 6 CYCLES, 75MG ON DAYS 1,2,3,4
     Route: 048
     Dates: start: 20080109, end: 20080506
  10. MABTHERA [Suspect]
     Active Substance: RITUXIMAB
     Indication: B-CELL LYMPHOMA
  11. VINCRISTINE [Concomitant]
     Active Substance: VINCRISTINE
     Dosage: 0.5MG/MQ ?1 LINE 9 CYCLE
     Route: 042
     Dates: start: 1995, end: 1996
  12. CYCLOPHOSPHAMIDE. [Concomitant]
     Active Substance: CYCLOPHOSPHAMIDE
     Dosage: SECTHIRD LINE?500 MG ON DAY 1,2 3 EVERY 28 DAYS
     Route: 042
     Dates: start: 20080708, end: 20080828

REACTIONS (2)
  - Progressive multifocal leukoencephalopathy [Unknown]
  - Rash [Unknown]

NARRATIVE: CASE EVENT DATE: 20080108
